FAERS Safety Report 25804530 (Version 1)
Quarter: 2025Q3

REPORT INFORMATION
  Report Type: Spontaneous
  Country: EU (occurrence: EU)
  Receive Date: 20250915
  Receipt Date: 20250915
  Transmission Date: 20251021
  Serious: Yes (Other)
  Sender: NOVARTIS
  Company Number: EU-002147023-NVSC2025RO138691

PATIENT
  Age: 54 Year

DRUGS (1)
  1. NILOTINIB [Suspect]
     Active Substance: NILOTINIB
     Indication: Chronic myeloid leukaemia
     Route: 065
     Dates: end: 2016

REACTIONS (5)
  - Hepatitis cholestatic [Unknown]
  - Cirrhosis alcoholic [Unknown]
  - Diabetes mellitus [Unknown]
  - Hypertension [Unknown]
  - Dyslipidaemia [Unknown]

NARRATIVE: CASE EVENT DATE: 20160101
